FAERS Safety Report 21195207 (Version 1)
Quarter: 2022Q3

REPORT INFORMATION
  Report Type: Spontaneous
  Country: US (occurrence: US)
  Receive Date: 20220810
  Receipt Date: 20220810
  Transmission Date: 20221027
  Serious: Yes (Hospitalization, Other)
  Sender: FDA-Public Use
  Company Number: US-BIOVITRUM-2022US09487

PATIENT
  Sex: Female

DRUGS (1)
  1. SYNAGIS [Suspect]
     Active Substance: PALIVIZUMAB
     Indication: Cardiac septal defect
     Dosage: 73.50(UNIT NOT REPORTED)
     Dates: start: 20220530

REACTIONS (2)
  - Respiratory distress [Unknown]
  - Respiratory tract congestion [Unknown]
